FAERS Safety Report 5635572-2 (Version None)
Quarter: 2008Q1

REPORT INFORMATION
  Report Type: 
  Country: None (occurrence: None)
  Receive Date: 20080222
  Receipt Date: 20080212
  Transmission Date: 20080703
  Serious: Yes (Other)
  Sender: FDA-Public Use
  Company Number: BR-PFIZER INC-2008015632

PATIENT
  Sex: Male

DRUGS (2)
  1. VARENICLINE TABLETS [Suspect]
     Route: 048
  2. ATORVASTATIN CALCIUM [Suspect]
     Route: 048

REACTIONS (2)
  - ANGIOPLASTY [None]
  - HEPATOMEGALY [None]
